FAERS Safety Report 4862151-7 (Version None)
Quarter: 2005Q4

REPORT INFORMATION
  Report Type: 
  Country: None (occurrence: None)
  Receive Date: 20051201
  Receipt Date: 20050825
  Transmission Date: 20060501
  Serious: No
  Sender: FDA-Public Use
  Company Number: 2005PV001558

PATIENT
  Age: 42 Year
  Sex: Female
  Weight: 85.503 kg

DRUGS (9)
  1. BYETTA [Suspect]
     Indication: DIABETES MELLITUS NON-INSULIN-DEPENDENT
     Dosage: 5 MCG; BID; SC
     Route: 058
     Dates: start: 20050814
  2. COZAAR [Concomitant]
  3. ACIPHEX [Concomitant]
  4. GLUCOTROL XL [Concomitant]
  5. GLUCOPHAGE [Concomitant]
  6. ALBUTEROL SULFATE AUTOHALER [Concomitant]
  7. ACTOS [Concomitant]
  8. TYLENOL (CAPLET) [Concomitant]
  9. GAVISCON [Concomitant]

REACTIONS (4)
  - BLOOD GLUCOSE INCREASED [None]
  - GASTROOESOPHAGEAL REFLUX DISEASE [None]
  - NAUSEA [None]
  - WEIGHT DECREASED [None]
